FAERS Safety Report 8074548-5 (Version None)
Quarter: 2012Q1

REPORT INFORMATION
  Report Type: 
  Country: None (occurrence: None)
  Receive Date: 20120126
  Receipt Date: 20120123
  Transmission Date: 20120608
  Serious: Yes (Death)
  Sender: FDA-Public Use
  Company Number: ES-ELI_LILLY_AND_COMPANY-ES201201006274

PATIENT
  Age: 62 Year
  Sex: Male

DRUGS (3)
  1. SINOTROM [Concomitant]
     Indication: CARDIAC VALVE DISEASE
     Dosage: 4 MG, UNK
  2. TELMISARTAN [Concomitant]
     Indication: HYPERTENSION
  3. CIALIS [Suspect]
     Dosage: 20 MG, UNKNOWN
     Route: 065
     Dates: start: 20111201

REACTIONS (1)
  - DEATH [None]
